FAERS Safety Report 4626997-2 (Version None)
Quarter: 2005Q1

REPORT INFORMATION
  Report Type: 
  Country: None (occurrence: None)
  Receive Date: 20050331
  Receipt Date: 20050329
  Transmission Date: 20050727
  Serious: Yes (Other)
  Sender: FDA-Public Use
  Company Number: 212120

PATIENT
  Sex: Female

DRUGS (1)
  1. HERCEPTIN                      (TRASTUZUMAB) PWDR + SOLVENT [Suspect]
     Indication: BREAST CANCER
     Dosage: INTRAVENUOS
     Route: 042

REACTIONS (1)
  - ANAPHYLACTOID REACTION [None]
